FAERS Safety Report 11393157 (Version 2)
Quarter: 2015Q4

REPORT INFORMATION
  Report Type: Spontaneous
  Country: JP (occurrence: JP)
  Receive Date: 20150818
  Receipt Date: 20151113
  Transmission Date: 20160304
  Serious: Yes (Life-Threatening, Other)
  Sender: FDA-Public Use
  Company Number: JP-BAXTER-2015BAX044366

PATIENT
  Age: 55 Year
  Sex: Female

DRUGS (24)
  1. CAPECITABINE. [Suspect]
     Active Substance: CAPECITABINE
     Indication: RECURRENT CANCER
  2. BEVACIZUMAB [Suspect]
     Active Substance: BEVACIZUMAB
     Indication: MALIGNANT NEOPLASM PROGRESSION
  3. TYKERB [Suspect]
     Active Substance: LAPATINIB DITOSYLATE
     Indication: METASTASES TO CENTRAL NERVOUS SYSTEM
     Route: 048
     Dates: start: 201111
  4. DOCETAXEL. [Suspect]
     Active Substance: DOCETAXEL
     Indication: MALIGNANT NEOPLASM PROGRESSION
     Route: 042
     Dates: start: 201208
  5. DOCETAXEL. [Suspect]
     Active Substance: DOCETAXEL
     Indication: METASTASES TO LYMPH NODES
  6. TRASTUZUMAB [Suspect]
     Active Substance: TRASTUZUMAB
     Indication: INVASIVE PAPILLARY BREAST CARCINOMA
     Route: 042
     Dates: start: 200712
  7. PACLITAXEL. [Suspect]
     Active Substance: PACLITAXEL
     Indication: METASTASES TO LUNG
     Route: 042
     Dates: start: 201009
  8. TYKERB [Suspect]
     Active Substance: LAPATINIB DITOSYLATE
     Indication: RECURRENT CANCER
  9. CAPECITABINE. [Suspect]
     Active Substance: CAPECITABINE
     Indication: METASTASES TO CENTRAL NERVOUS SYSTEM
     Route: 048
     Dates: start: 201111
  10. ENDOXAN 1G [Suspect]
     Active Substance: CYCLOPHOSPHAMIDE
     Indication: INVASIVE PAPILLARY BREAST CARCINOMA
     Route: 042
     Dates: start: 200712
  11. ENDOXAN 1G [Suspect]
     Active Substance: CYCLOPHOSPHAMIDE
     Indication: RECURRENT CANCER
  12. FLOUROURACIL [Suspect]
     Active Substance: FLUOROURACIL
     Indication: INVASIVE PAPILLARY BREAST CARCINOMA
     Route: 065
     Dates: start: 200712
  13. TRASTUZUMAB [Suspect]
     Active Substance: TRASTUZUMAB
     Indication: METASTASES TO CENTRAL NERVOUS SYSTEM
     Dosage: COMBINATION WITH GEMCITABINE
     Route: 042
     Dates: start: 201111
  14. VINORELBINE [Suspect]
     Active Substance: VINORELBINE\VINORELBINE TARTRATE
     Indication: RECURRENT CANCER
  15. BEVACIZUMAB [Suspect]
     Active Substance: BEVACIZUMAB
     Indication: METASTASES TO LYMPH NODES
  16. DOCETAXEL. [Suspect]
     Active Substance: DOCETAXEL
     Indication: METASTASES TO LUNG
     Route: 042
  17. GEMCITABINE HYDROCHLORIDE. [Suspect]
     Active Substance: GEMCITABINE HYDROCHLORIDE
     Indication: METASTASES TO CENTRAL NERVOUS SYSTEM
     Route: 042
     Dates: start: 201111
  18. GEMCITABINE HYDROCHLORIDE. [Suspect]
     Active Substance: GEMCITABINE HYDROCHLORIDE
     Indication: RECURRENT CANCER
  19. DOCETAXEL. [Suspect]
     Active Substance: DOCETAXEL
     Indication: INVASIVE PAPILLARY BREAST CARCINOMA
  20. EPIRUBICIN [Suspect]
     Active Substance: EPIRUBICIN
     Indication: INVASIVE PAPILLARY BREAST CARCINOMA
     Route: 065
     Dates: start: 200712
  21. VINORELBINE [Suspect]
     Active Substance: VINORELBINE\VINORELBINE TARTRATE
     Indication: METASTASES TO CENTRAL NERVOUS SYSTEM
     Route: 065
     Dates: start: 201111
  22. BEVACIZUMAB [Suspect]
     Active Substance: BEVACIZUMAB
     Indication: METASTASES TO LUNG
     Route: 042
     Dates: start: 201208
  23. ENDOXAN 1G [Suspect]
     Active Substance: CYCLOPHOSPHAMIDE
     Indication: METASTASES TO CENTRAL NERVOUS SYSTEM
     Route: 042
     Dates: start: 201111
  24. TRASTUZUMAB [Suspect]
     Active Substance: TRASTUZUMAB
     Indication: RECURRENT CANCER
     Dosage: COMBINATION WITH VINORELBINE
     Route: 042
     Dates: start: 201111

REACTIONS (8)
  - Metastases to lymph nodes [Unknown]
  - Metastases to bone [Unknown]
  - Metastases to central nervous system [Unknown]
  - Recurrent cancer [Unknown]
  - Metastases to lung [Not Recovered/Not Resolved]
  - Pleural effusion [Unknown]
  - White blood cell count decreased [Unknown]
  - Malignant neoplasm progression [Unknown]

NARRATIVE: CASE EVENT DATE: 201009
